FAERS Safety Report 4691403-9 (Version None)
Quarter: 2005Q2

REPORT INFORMATION
  Report Type: 
  Country: None (occurrence: None)
  Receive Date: 20050615
  Receipt Date: 20050609
  Transmission Date: 20051028
  Serious: Yes (Hospitalization)
  Sender: FDA-Public Use
  Company Number: 002#3#2005-00179

PATIENT
  Sex: Female

DRUGS (1)
  1. GLYCOLAX [Suspect]
     Indication: CONSTIPATION

REACTIONS (4)
  - ABSCESS [None]
  - DRUG INEFFECTIVE [None]
  - DRUG LEVEL CHANGED [None]
  - PHARMACEUTICAL PRODUCT COMPLAINT [None]
